FAERS Safety Report 4578261-8 (Version None)
Quarter: 2005Q1

REPORT INFORMATION
  Report Type: 
  Country: None (occurrence: None)
  Receive Date: 20050201
  Receipt Date: 20050201
  Transmission Date: 20050727
  Serious: Yes (Other)
  Sender: FDA-Public Use
  Company Number: None

PATIENT
  Age: 64 Year
  Sex: Female
  Weight: 86.9 kg

DRUGS (9)
  1. CISPLATIN [Suspect]
     Indication: SMALL CELL LUNG CANCER STAGE UNSPECIFIED
     Dosage: 116 MG IV EVERY 3 WKS X 2 CYCLES
     Route: 042
     Dates: start: 20050119
  2. ETOPOSIDE [Suspect]
     Indication: SMALL CELL LUNG CANCER STAGE UNSPECIFIED
     Dosage: 233 MG IV EVERY 3 WEEKS X 2 CYCLES
     Route: 042
     Dates: start: 20050119
  3. SYNTHROID [Concomitant]
  4. XANAX [Concomitant]
  5. ZOLOFT [Concomitant]
  6. XRT [Concomitant]
  7. ZOCOR [Concomitant]
  8. ACTOS [Concomitant]
  9. BUSPAR [Concomitant]

REACTIONS (2)
  - NEUTROPHIL COUNT DECREASED [None]
  - WHITE BLOOD CELL COUNT DECREASED [None]
